FAERS Safety Report 10662400 (Version 2)
Quarter: 2015Q1

REPORT INFORMATION
  Report Type: Spontaneous
  Country: NL (occurrence: NL)
  Receive Date: 20141218
  Receipt Date: 20150108
  Transmission Date: 20150720
  Serious: Yes (Hospitalization)
  Sender: FDA-Public Use
  Company Number: NL-PFIZER INC-2014348340

PATIENT
  Age: 51 Year
  Sex: Male

DRUGS (7)
  1. SOMAVERT [Suspect]
     Active Substance: PEGVISOMANT
     Indication: ACROMEGALY
     Dosage: 30 MG, 1X/DAY
     Route: 058
     Dates: start: 20141201, end: 20141210
  2. ENALAPRIL [Concomitant]
     Active Substance: ENALAPRIL
     Dosage: 10 MG, 1X/DAY
     Route: 048
  3. CABERGOLINE. [Concomitant]
     Active Substance: CABERGOLINE
     Dosage: 0.5 (NO UNIT PROVIDED), 1X/DAY
     Route: 048
  4. HYDROCORTISON [Concomitant]
     Active Substance: HYDROCORTISONE
     Dosage: 20 MG, 1X/DAY
     Route: 048
  5. NAPROXEN. [Concomitant]
     Active Substance: NAPROXEN
     Dosage: 25 MG, 1-3X/DAY
     Route: 048
  6. TESTOSTERON [Concomitant]
     Active Substance: TESTOSTERONE
     Dosage: UNK, 1X/DAY
  7. CHLOORAMFENICOL RATIOPHARM [Concomitant]
     Dosage: UNK, 4X/DAY

REACTIONS (1)
  - Brain neoplasm [Unknown]
